FAERS Safety Report 17517890 (Version 1)
Quarter: 2020Q1

REPORT INFORMATION
  Report Type: Spontaneous
  Country: US (occurrence: US)
  Receive Date: 20200309
  Receipt Date: 20200309
  Transmission Date: 20200409
  Serious: No
  Sender: FDA-Public Use
  Company Number: NVSC2020US066939

PATIENT
  Age: 73 Year
  Sex: Male

DRUGS (1)
  1. ENTRESTO [Suspect]
     Active Substance: SACUBITRIL\VALSARTAN
     Indication: CARDIOVASCULAR DISORDER
     Dosage: 2426 MG/KG, BID
     Route: 048
     Dates: start: 20191031, end: 20200102

REACTIONS (1)
  - Rash [Recovered/Resolved]
